FAERS Safety Report 17106481 (Version 12)
Quarter: 2021Q2

REPORT INFORMATION
  Report Type: Spontaneous
  Country: US (occurrence: US)
  Receive Date: 20191203
  Receipt Date: 20210628
  Transmission Date: 20210716
  Serious: Yes (Other)
  Sender: FDA-Public Use
  Company Number: US-PFIZER INC-2019522362

PATIENT
  Age: 37 Year
  Sex: Male

DRUGS (7)
  1. SOMAVERT [Suspect]
     Active Substance: PEGVISOMANT
     Dosage: 20 MG, 1X/DAY(20 MG SQ QD)
     Route: 058
     Dates: start: 20190101
  2. SOMAVERT [Suspect]
     Active Substance: PEGVISOMANT
     Dosage: 15 MG, 1X/DAY
     Route: 058
     Dates: start: 20190131
  3. SOMAVERT [Suspect]
     Active Substance: PEGVISOMANT
     Dosage: 30 MG, 1X/DAY(30 MG SQ QD)
     Route: 058
     Dates: start: 20190103
  4. SOMAVERT [Suspect]
     Active Substance: PEGVISOMANT
     Indication: ACROMEGALY
     Dosage: UNK
     Dates: start: 20181231
  5. SOMAVERT [Suspect]
     Active Substance: PEGVISOMANT
     Indication: GIGANTISM
     Dosage: 10 MG, 1X/DAY
     Route: 058
     Dates: start: 20190101
  6. SOMAVERT [Suspect]
     Active Substance: PEGVISOMANT
     Dosage: 15 MG
     Route: 058
     Dates: start: 20190101
  7. SOMAVERT [Suspect]
     Active Substance: PEGVISOMANT
     Dosage: 20 MG, 1X/DAY(20 MG SQ QD)
     Route: 058
     Dates: start: 20190103

REACTIONS (6)
  - Product dose omission issue [Unknown]
  - Insulin-like growth factor abnormal [Not Recovered/Not Resolved]
  - Brain neoplasm [Not Recovered/Not Resolved]
  - Loose tooth [Not Recovered/Not Resolved]
  - Pain [Not Recovered/Not Resolved]
  - Back pain [Not Recovered/Not Resolved]

NARRATIVE: CASE EVENT DATE: 20210511
